FAERS Safety Report 7827547-X (Version None)
Quarter: 2011Q4

REPORT INFORMATION
  Report Type: 
  Country: None (occurrence: None)
  Receive Date: 20111020
  Receipt Date: 20111019
  Transmission Date: 20120403
  Serious: Yes (Life-Threatening, Hospitalization)
  Sender: FDA-Public Use
  Company Number: PHFR2011GB04772

PATIENT
  Sex: Male
  Weight: 79 kg

DRUGS (6)
  1. CLOZARIL [Suspect]
     Indication: SCHIZOPHRENIA
     Dosage: 700 MG/DAY
     Route: 048
     Dates: start: 20081103
  2. VALPROATE SODIUM [Concomitant]
     Dosage: 1.5 G/DAY
  3. ALBUTEROL [Concomitant]
     Dosage: 100 UG/DAY
  4. CLOZARIL [Suspect]
     Dosage: 700 MG, QD
     Route: 048
     Dates: start: 20100420, end: 20110830
  5. DIAZEPAM [Concomitant]
     Dosage: 20 MG/DAY
     Route: 048
  6. BECLOMETHASONE DIPROPIONATE [Concomitant]
     Dosage: 200 UG/DAY
     Route: 048

REACTIONS (5)
  - OXYGEN SATURATION DECREASED [None]
  - PNEUMONIA [None]
  - LARYNGEAL OEDEMA [None]
  - GENERAL PHYSICAL CONDITION ABNORMAL [None]
  - LOSS OF CONSCIOUSNESS [None]
